FAERS Safety Report 17456656 (Version 2)
Quarter: 2020Q2

REPORT INFORMATION
  Report Type: Spontaneous
  Country: US (occurrence: US)
  Receive Date: 20200225
  Receipt Date: 20200410
  Transmission Date: 20200713
  Serious: Yes (Hospitalization)
  Sender: FDA-Public Use
  Company Number: US-VERTEX PHARMACEUTICALS-2020-002327

PATIENT
  Age: 26 Year
  Sex: Female

DRUGS (15)
  1. TOBI [Concomitant]
     Active Substance: TOBRAMYCIN
  2. SALINE [SODIUM CHLORIDE] [Concomitant]
     Active Substance: SODIUM CHLORIDE
  3. ZYVOX [Concomitant]
     Active Substance: LINEZOLID
  4. MAGNESIUM [Concomitant]
     Active Substance: MAGNESIUM
  5. VITAMIN K [PHYTOMENADIONE] [Concomitant]
  6. MIRALAX [Concomitant]
     Active Substance: POLYETHYLENE GLYCOL 3350
  7. NASONEX [Concomitant]
     Active Substance: MOMETASONE FUROATE
  8. AZITHROMYCIN ANHYDROUS. [Concomitant]
     Active Substance: AZITHROMYCIN ANHYDROUS
  9. ALBUTEROL [SALBUTAMOL] [Concomitant]
     Active Substance: ALBUTEROL
  10. NOVOLOG [Concomitant]
     Active Substance: INSULIN ASPART
  11. CREON [Concomitant]
     Active Substance: PANCRELIPASE AMYLASE\PANCRELIPASE LIPASE\PANCRELIPASE PROTEASE
  12. LANTUS [Concomitant]
     Active Substance: INSULIN GLARGINE
  13. PREVACID [Concomitant]
     Active Substance: LANSOPRAZOLE
  14. PULMOZYME [Suspect]
     Active Substance: DORNASE ALFA
     Indication: CYSTIC FIBROSIS
     Dosage: 1 MILLIGRAM PER MILLILITRE, QD
     Dates: start: 20161121
  15. SYMDEKO [Suspect]
     Active Substance: IVACAFTOR\TEZACAFTOR
     Indication: CYSTIC FIBROSIS
     Dosage: 100MG TEZACAFTOR/150MG IVACAFTOR; 150MG IVACAFTOR, FREQ UNK
     Route: 048
     Dates: start: 20190730, end: 20200110

REACTIONS (2)
  - Cystic fibrosis [Not Recovered/Not Resolved]
  - Malaise [Not Recovered/Not Resolved]

NARRATIVE: CASE EVENT DATE: 2020
